FAERS Safety Report 7383293-0 (Version None)
Quarter: 2011Q1

REPORT INFORMATION
  Report Type: 
  Country: None (occurrence: None)
  Receive Date: 20110324
  Receipt Date: 20110324
  Transmission Date: 20110831
  Serious: Yes (Life-Threatening, Hospitalization)
  Sender: FDA-Public Use
  Company Number: None

PATIENT
  Age: 50 Year
  Sex: Male
  Weight: 94.3482 kg

DRUGS (6)
  1. RAMIPRIL [Concomitant]
  2. PREDNISONE [Concomitant]
  3. NEXIUM [Concomitant]
  4. FOLIC ACID [Concomitant]
  5. MULTI-VITAMIN [Concomitant]
  6. PRADAXA [Suspect]
     Indication: PULMONARY EMBOLISM
     Dosage: 150MG TWICE A DAY PO
     Route: 048
     Dates: start: 20110315, end: 20110322

REACTIONS (3)
  - GASTROINTESTINAL HAEMORRHAGE [None]
  - HAEMORRHAGE URINARY TRACT [None]
  - GENITAL HAEMORRHAGE [None]
